FAERS Safety Report 11057441 (Version 2)
Quarter: 2015Q2

REPORT INFORMATION
  Report Type: Spontaneous
  Country: US (occurrence: US)
  Receive Date: 20150422
  Receipt Date: 20150612
  Transmission Date: 20150821
  Serious: Yes (Other)
  Sender: FDA-Public Use
  Company Number: US-ELI_LILLY_AND_COMPANY-US201504005034

PATIENT
  Age: 63 Year
  Sex: Female

DRUGS (3)
  1. FORTEO [Suspect]
     Active Substance: TERIPARATIDE
     Indication: PROPHYLAXIS
  2. FORTEO [Suspect]
     Active Substance: TERIPARATIDE
     Indication: OSTEOPOROSIS
     Dosage: UNK, QD
     Route: 065
     Dates: start: 201404
  3. FORTEO [Suspect]
     Active Substance: TERIPARATIDE
     Indication: SCOLIOSIS
     Dosage: UNK, QD
     Route: 065
     Dates: end: 20140901

REACTIONS (29)
  - Hypokinesia [Unknown]
  - Malaise [Not Recovered/Not Resolved]
  - Pain in extremity [Unknown]
  - Abasia [Unknown]
  - Diplopia [Unknown]
  - Confusional state [Unknown]
  - Blood cholesterol increased [Unknown]
  - Stress [Not Recovered/Not Resolved]
  - Insomnia [Unknown]
  - Muscle spasms [Unknown]
  - Heart rate increased [Unknown]
  - Palpitations [Unknown]
  - Blood thyroid stimulating hormone increased [Unknown]
  - Musculoskeletal pain [Unknown]
  - Eyelid oedema [Unknown]
  - Dry skin [Unknown]
  - Blood pressure increased [Unknown]
  - Spinal pain [Unknown]
  - Nervousness [Unknown]
  - Arthralgia [Unknown]
  - Hyperhidrosis [Unknown]
  - Hypothyroidism [Not Recovered/Not Resolved]
  - Weight increased [Not Recovered/Not Resolved]
  - Alopecia [Unknown]
  - Joint swelling [Unknown]
  - Decreased appetite [Unknown]
  - Feeling abnormal [Unknown]
  - Peripheral coldness [Unknown]
  - Blood calcium increased [Unknown]

NARRATIVE: CASE EVENT DATE: 201404
